FAERS Safety Report 23323957 (Version 1)
Quarter: 2023Q4

REPORT INFORMATION
  Report Type: Spontaneous
  Country: US (occurrence: US)
  Receive Date: 20231221
  Receipt Date: 20231221
  Transmission Date: 20240110
  Serious: Yes (Other)
  Sender: FDA-Public Use
  Company Number: US-KOANAAP-SML-US-2023-01712

PATIENT
  Age: 6 Decade
  Sex: Male
  Weight: 112 kg

DRUGS (5)
  1. GEMCITABINE [Suspect]
     Active Substance: GEMCITABINE
     Indication: Transitional cell carcinoma
     Dosage: FULL DOSE
     Route: 043
  2. GEMCITABINE [Suspect]
     Active Substance: GEMCITABINE
     Dosage: ANOTHER ROUND OF CHEMO-THERAPY (6 CYCLES)
     Route: 043
  3. DOCETAXEL [Suspect]
     Active Substance: DOCETAXEL\DOCETAXEL ANHYDROUS
     Indication: Transitional cell carcinoma
     Route: 043
  4. CARBOPLATIN [Suspect]
     Active Substance: CARBOPLATIN
     Indication: Transitional cell carcinoma
     Route: 065
  5. AVELUMAB [Suspect]
     Active Substance: AVELUMAB
     Indication: Transitional cell carcinoma
     Dosage: AVELUMAB
     Route: 065

REACTIONS (4)
  - Metastases to liver [Unknown]
  - Metastases to lymph nodes [Unknown]
  - Disease progression [Unknown]
  - Drug ineffective [Unknown]
